FAERS Safety Report 20082352 (Version 1)
Quarter: 2021Q4

REPORT INFORMATION
  Report Type: Spontaneous
  Country: PK (occurrence: PK)
  Receive Date: 20211117
  Receipt Date: 20211117
  Transmission Date: 20220303
  Serious: No
  Sender: FDA-Public Use
  Company Number: PK-LUPIN PHARMACEUTICALS INC.-2020-11845

PATIENT
  Age: 49 Year
  Sex: Male

DRUGS (2)
  1. VORICONAZOLE [Suspect]
     Active Substance: VORICONAZOLE
     Indication: Mycetoma mycotic
     Dosage: 400 MILLIGRAM, QD
     Route: 065
  2. TERBINAFINE [Concomitant]
     Active Substance: TERBINAFINE
     Indication: Mycetoma mycotic
     Dosage: 500 MILLIGRAM, QD
     Route: 065

REACTIONS (8)
  - Influenza like illness [Unknown]
  - Mouth ulceration [Unknown]
  - Eye irritation [Unknown]
  - Abdominal discomfort [Unknown]
  - Fatigue [Unknown]
  - Photophobia [Unknown]
  - Myalgia [Unknown]
  - Muscle spasms [Unknown]
